FAERS Safety Report 4514627-X (Version None)
Quarter: 2004Q3

REPORT INFORMATION
  Report Type: 
  Country: None (occurrence: None)
  Receive Date: 20040927
  Receipt Date: 20040402
  Transmission Date: 20050211
  Serious: No
  Sender: FDA-Public Use
  Company Number: US067506

PATIENT
  Age: 57 Year
  Sex: Female

DRUGS (5)
  1. NEULASTA [Suspect]
     Indication: CHEMOTHERAPY
     Dosage: 6 MG, 1 IN 3 WEEKS, SC
     Route: 058
     Dates: start: 20040119, end: 20040209
  2. CYCLOPHOSPHAMIDE [Concomitant]
  3. METHOTREXATE [Concomitant]
  4. FLUOROURACIL [Concomitant]
  5. EPOGEN [Concomitant]

REACTIONS (2)
  - CHEST PAIN [None]
  - INSOMNIA [None]
